FAERS Safety Report 4332175-7 (Version None)
Quarter: 2004Q1

REPORT INFORMATION
  Report Type: 
  Country: None (occurrence: None)
  Receive Date: 20040331
  Receipt Date: 20040317
  Transmission Date: 20041129
  Serious: Yes (Death)
  Sender: FDA-Public Use
  Company Number: JP_040302819

PATIENT
  Sex: Male

DRUGS (3)
  1. ZYPREXA [Suspect]
     Indication: DISSOCIATIVE DISORDER
     Dosage: 5 MG DAY
     Dates: start: 20040310
  2. AMOBAN (ZOPICLONE) [Concomitant]
  3. LENDORM [Concomitant]

REACTIONS (4)
  - FALL [None]
  - HEAD BANGING [None]
  - HEAD INJURY [None]
  - SUBDURAL HAEMATOMA [None]
